FAERS Safety Report 4853005-0 (Version None)
Quarter: 2005Q4

REPORT INFORMATION
  Report Type: 
  Country: None (occurrence: None)
  Receive Date: 20051212
  Receipt Date: 20051128
  Transmission Date: 20060501
  Serious: Yes (Death, Life-Threatening)
  Sender: FDA-Public Use
  Company Number: WAES 0510ESP00039

PATIENT
  Age: 52 Year
  Sex: Female

DRUGS (11)
  1. CANCIDAS [Suspect]
     Indication: FUNGAL INFECTION
     Dosage: 70MG/DAILY
     Route: 042
     Dates: start: 20051019, end: 20051019
  2. CEFEPIME [Concomitant]
  3. CIPROFLOXACIN [Concomitant]
  4. COLISTIN [Concomitant]
  5. DOXYCYCLINE [Concomitant]
  6. GANCICLOVIR [Concomitant]
  7. IMIPENEM [Concomitant]
  8. LINEZOLID [Concomitant]
  9. MYCOPHENOLATE MOFETIL [Concomitant]
  10. PIPERACILLIN SODIUM (+)TAZOBACTAM SODIU [Concomitant]
  11. SULFAMETHOXAZOLE + TRIMETHOPRIM [Concomitant]

REACTIONS (21)
  - ACTIVATED PARTIAL THROMBOPLASTIN TIME PROLONGED [None]
  - BLOOD ALBUMIN DECREASED [None]
  - BLOOD BICARBONATE DECREASED [None]
  - BLOOD FIBRINOGEN DECREASED [None]
  - BLOOD GLUCOSE INCREASED [None]
  - BLOOD PH DECREASED [None]
  - BLOOD POTASSIUM INCREASED [None]
  - BLOOD UREA INCREASED [None]
  - CANDIDIASIS [None]
  - CULTURE URINE POSITIVE [None]
  - CYTOLYTIC HEPATITIS [None]
  - HAEMOGLOBIN DECREASED [None]
  - HEPATIC FAILURE [None]
  - HYPOTENSION [None]
  - PLATELET COUNT DECREASED [None]
  - PNEUMOTHORAX [None]
  - PO2 DECREASED [None]
  - PROTEIN TOTAL DECREASED [None]
  - PROTHROMBIN LEVEL INCREASED [None]
  - PROTHROMBIN TIME PROLONGED [None]
  - SEPTIC SHOCK [None]
